FAERS Safety Report 7518078-5 (Version None)
Quarter: 2011Q2

REPORT INFORMATION
  Report Type: 
  Country: None (occurrence: None)
  Receive Date: 20110531
  Receipt Date: 20110531
  Transmission Date: 20111010
  Serious: No
  Sender: FDA-Public Use
  Company Number: None

PATIENT
  Age: 62 Year
  Sex: Male
  Weight: 78.6 kg

DRUGS (3)
  1. OXYCODONE AND ACETAMINOPHEN [Suspect]
     Indication: BONE PAIN
     Dosage: 5/325 MG 1-2 EVERY 4-6 HRS
  2. OXYCODONE AND ACETAMINOPHEN [Suspect]
     Indication: BACK PAIN
     Dosage: 5/325 MG 1-2 EVERY 4-6 HRS
  3. OXYCODONE AND ACETAMINOPHEN [Suspect]
     Indication: CHEST PAIN
     Dosage: 5/325 MG 1-2 EVERY 4-6 HRS

REACTIONS (3)
  - HEADACHE [None]
  - PRODUCT SUBSTITUTION ISSUE [None]
  - DRUG INEFFECTIVE [None]
